FAERS Safety Report 5009412-9 (Version None)
Quarter: 2006Q2

REPORT INFORMATION
  Report Type: 
  Country: None (occurrence: None)
  Receive Date: 20060522
  Receipt Date: 20060509
  Transmission Date: 20061013
  Serious: Yes (Hospitalization)
  Sender: FDA-Public Use
  Company Number: 2006063563

PATIENT
  Age: 65 Year
  Sex: Male
  Weight: 119.296 kg

DRUGS (1)
  1. CELEBREX [Suspect]
     Indication: ILL-DEFINED DISORDER
     Dosage: 800 MG (400 MG, 2 IN 1 D),

REACTIONS (3)
  - ILL-DEFINED DISORDER [None]
  - UNEVALUABLE EVENT [None]
  - WEIGHT INCREASED [None]
